FAERS Safety Report 8089140-6 (Version None)
Quarter: 2012Q1

REPORT INFORMATION
  Report Type: 
  Country: None (occurrence: None)
  Receive Date: 20120128
  Receipt Date: 20110808
  Transmission Date: 20120608
  Serious: No
  Sender: FDA-Public Use
  Company Number: US-ABBOTT-11P-163-0838240-00

PATIENT
  Age: 36 Year
  Sex: Male

DRUGS (4)
  1. HUMIRA [Suspect]
     Indication: PSORIASIS
     Dates: start: 20110601
  2. ACETAMINOPHEN [Concomitant]
     Indication: HEADACHE
     Dosage: OVER THE COUNTER PRN
  3. DESOXIMETASONE [Concomitant]
     Indication: PSORIASIS
     Dosage: PRN
     Route: 061
  4. DOVINEX [Concomitant]
     Indication: PSORIASIS
     Route: 061

REACTIONS (3)
  - WRONG TECHNIQUE IN DRUG USAGE PROCESS [None]
  - INCORRECT DOSE ADMINISTERED [None]
  - PAIN [None]
